FAERS Safety Report 9311093 (Version 1)
Quarter: 2013Q2

REPORT INFORMATION
  Report Type: Spontaneous
  Country: US (occurrence: US)
  Receive Date: 20130528
  Receipt Date: 20130528
  Transmission Date: 20140414
  Serious: No
  Sender: FDA-Public Use
  Company Number: US-PFIZER INC-2013160739

PATIENT
  Age: 45 Year
  Sex: Male
  Weight: 68.03 kg

DRUGS (7)
  1. LYRICA [Suspect]
     Indication: SLEEP DISORDER
     Dosage: 200 MG, 1X/DAY
     Dates: start: 2008
  2. LYRICA [Suspect]
     Dosage: HE STARTED TO REDUCE AT 12.5 MG EVERY 7 TO 10 DAYS
     Dates: start: 201302
  3. LYRICA [Suspect]
     Dosage: 25 MG DAILY
  4. CYTOMEL [Concomitant]
     Indication: HYPOTHYROIDISM
     Dosage: 10 UG, 1X/DAY
  5. SYNTHROID [Concomitant]
     Indication: HYPOTHYROIDISM
     Dosage: 125 UG, 1X/DAY
  6. TRAZODONE [Concomitant]
     Indication: LYME DISEASE
     Dosage: UNK
  7. TRAZODONE [Concomitant]
     Indication: SLEEP DISORDER

REACTIONS (8)
  - Off label use [Unknown]
  - Drug withdrawal syndrome [Not Recovered/Not Resolved]
  - Anxiety [Not Recovered/Not Resolved]
  - Nervousness [Not Recovered/Not Resolved]
  - Headache [Not Recovered/Not Resolved]
  - Neck pain [Not Recovered/Not Resolved]
  - Musculoskeletal stiffness [Not Recovered/Not Resolved]
  - Therapeutic response unexpected [Unknown]
